FAERS Safety Report 23056450 (Version 1)
Quarter: 2023Q4

REPORT INFORMATION
  Report Type: Spontaneous
  Country: AR (occurrence: AR)
  Receive Date: 20231011
  Receipt Date: 20231011
  Transmission Date: 20240110
  Serious: Yes (Hospitalization)
  Sender: FDA-Public Use
  Company Number: AR-TEVA-2023-AR-2933808

PATIENT
  Age: 29 Year
  Sex: Female

DRUGS (1)
  1. LAMOTRIGINE [Suspect]
     Active Substance: LAMOTRIGINE
     Indication: Depression
     Route: 048
     Dates: start: 202307

REACTIONS (20)
  - Stevens-Johnson syndrome [Recovered/Resolved]
  - Ocular hyperaemia [Recovered/Resolved]
  - Cough [Recovered/Resolved]
  - Rhinorrhoea [Recovered/Resolved]
  - Skin lesion [Recovered/Resolved]
  - Oral mucosal exfoliation [Recovered/Resolved]
  - Skin plaque [Recovered/Resolved]
  - Oral mucosal blistering [Recovered/Resolved]
  - Dysphagia [Recovered/Resolved]
  - Dysuria [Recovered/Resolved]
  - Lip oedema [Recovered/Resolved]
  - Erythema [Recovered/Resolved]
  - Oral disorder [Recovered/Resolved]
  - Oral pain [Recovered/Resolved]
  - Hypoproteinaemia [Unknown]
  - Hypoalbuminaemia [Unknown]
  - Toxic epidermal necrolysis [Unknown]
  - Hypertransaminasaemia [Unknown]
  - Enterobacter bacteraemia [Unknown]
  - Rectal haemorrhage [Unknown]

NARRATIVE: CASE EVENT DATE: 20230101
